FAERS Safety Report 9285739 (Version 2)
Quarter: 2013Q2

REPORT INFORMATION
  Report Type: Spontaneous
  Country: US (occurrence: US)
  Receive Date: 20130513
  Receipt Date: 20130603
  Transmission Date: 20140414
  Serious: Yes (Disabling, Other)
  Sender: FDA-Public Use
  Company Number: US-PFIZER INC-2013144339

PATIENT
  Age: 53 Year
  Sex: Male
  Weight: 96.6 kg

DRUGS (1)
  1. LYRICA [Suspect]
     Indication: CONVULSION
     Dosage: 75 MG, 2X/DAY
     Route: 048
     Dates: start: 2006

REACTIONS (2)
  - Hydrocephalus [Unknown]
  - Brain injury [Unknown]
